FAERS Safety Report 11881722 (Version 2)
Quarter: 2016Q1

REPORT INFORMATION
  Report Type: Spontaneous
  Country: US (occurrence: US)
  Receive Date: 20151231
  Receipt Date: 20160226
  Transmission Date: 20160526
  Serious: Yes (Life-Threatening, Hospitalization, Disabling, Other)
  Sender: FDA-Public Use
  Company Number: US-WEST-WARD PHARMACEUTICALS CORP.-US-H14001-15-02201

PATIENT
  Age: 72 Year
  Sex: Female

DRUGS (3)
  1. PREDNISONE. [Suspect]
     Active Substance: PREDNISONE
     Route: 048
     Dates: start: 2015, end: 20150730
  2. BACLOFEN. [Suspect]
     Active Substance: BACLOFEN
     Indication: LIGAMENT SPRAIN
     Route: 048
  3. PREDNISONE. [Suspect]
     Active Substance: PREDNISONE
     Indication: EXPOSURE TO TOXIC AGENT
     Route: 048
     Dates: start: 20150621, end: 2015

REACTIONS (18)
  - Renal tubular necrosis [Unknown]
  - Abasia [Unknown]
  - Herpes zoster [Not Recovered/Not Resolved]
  - Renal failure [Unknown]
  - Vomiting [Recovered/Resolved]
  - Decreased appetite [Recovered/Resolved]
  - Substance-induced psychotic disorder [Unknown]
  - Post herpetic neuralgia [Unknown]
  - Immunodeficiency [Unknown]
  - Trance [Unknown]
  - Depressed level of consciousness [Unknown]
  - Fall [Recovered/Resolved]
  - Nausea [Recovered/Resolved]
  - Aphasia [Unknown]
  - Ligament sprain [Unknown]
  - Impaired quality of life [Not Recovered/Not Resolved]
  - Asthenia [Unknown]
  - Dental caries [Unknown]

NARRATIVE: CASE EVENT DATE: 2015
